FAERS Safety Report 18485265 (Version 1)
Quarter: 2020Q4

REPORT INFORMATION
  Report Type: Spontaneous
  Country: US (occurrence: US)
  Receive Date: 20201110
  Receipt Date: 20201110
  Transmission Date: 20210114
  Serious: Yes (Disabling, Other)
  Sender: FDA-Public Use
  Company Number: US-TEVA-2020-US-1845816

PATIENT
  Sex: Female

DRUGS (1)
  1. COPAXONE [Suspect]
     Active Substance: GLATIRAMER ACETATE
     Indication: MULTIPLE SCLEROSIS
     Dosage: FORM STRENGTH AND DOSE: UNKNOWN
     Route: 065

REACTIONS (10)
  - Neovascular age-related macular degeneration [Unknown]
  - Peroneal nerve palsy [Unknown]
  - Disability [Not Recovered/Not Resolved]
  - Deafness [Unknown]
  - Atrial fibrillation [Unknown]
  - Dry age-related macular degeneration [Unknown]
  - Dysgraphia [Unknown]
  - Tremor [Unknown]
  - Diverticulitis [Unknown]
  - Fatigue [Unknown]

NARRATIVE: CASE EVENT DATE: 2008
